FAERS Safety Report 12337320 (Version 3)
Quarter: 2016Q2

REPORT INFORMATION
  Report Type: Spontaneous
  Country: US (occurrence: US)
  Receive Date: 20160505
  Receipt Date: 20160524
  Transmission Date: 20160815
  Serious: Yes (Death, Hospitalization)
  Sender: FDA-Public Use
  Company Number: US-PFIZER INC-2016236501

PATIENT
  Age: 70 Year
  Sex: Female
  Weight: 44 kg

DRUGS (3)
  1. NORCO [Concomitant]
     Active Substance: ACETAMINOPHEN\HYDROCODONE BITARTRATE
     Indication: PAIN
     Dosage: [HYDROCODONE BITARTRATE 10 MG]/[PARACETAMOL 325 MG] ONE EVERY HOUR, AS NEEDED
     Dates: start: 201512
  2. IBRANCE [Suspect]
     Active Substance: PALBOCICLIB
     Indication: CARCINOID TUMOUR PULMONARY
     Dosage: 125 MG CYCLIC (DAILY 1-21 DAY, ON 28 DAY CYCLE)
     Dates: start: 201602
  3. FENTANYL. [Concomitant]
     Active Substance: FENTANYL
     Indication: PAIN
     Dosage: 25 UG, UNK
     Dates: start: 201501

REACTIONS (6)
  - Carcinoid tumour pulmonary [Fatal]
  - Anaemia [Recovering/Resolving]
  - Disease progression [Fatal]
  - Asthenia [Not Recovered/Not Resolved]
  - Product use issue [Unknown]
  - Hyponatraemia [Recovering/Resolving]

NARRATIVE: CASE EVENT DATE: 2016
